FAERS Safety Report 14273079 (Version 1)
Quarter: 2017Q4

REPORT INFORMATION
  Report Type: Spontaneous
  Country: ES (occurrence: ES)
  Receive Date: 20171211
  Receipt Date: 20171211
  Transmission Date: 20180321
  Serious: Yes (Hospitalization, Other)
  Sender: FDA-Public Use
  Company Number: ES-OTSUKA-2015_016065

PATIENT
  Age: 7 Year
  Sex: Male
  Weight: 25.6 kg

DRUGS (2)
  1. ABILIFY [Suspect]
     Active Substance: ARIPIPRAZOLE
     Dosage: 25 ML, UNK
     Route: 048
     Dates: start: 20151201, end: 20151201
  2. ABILIFY [Suspect]
     Active Substance: ARIPIPRAZOLE
     Indication: ABNORMAL BEHAVIOUR
     Dosage: 0.25 ML, UNK
     Route: 048

REACTIONS (7)
  - Somnolence [Recovered/Resolved]
  - White blood cell count increased [Recovered/Resolved]
  - Nasopharyngitis [Unknown]
  - Neutrophil count increased [Recovered/Resolved]
  - Heart rate increased [Recovered/Resolved]
  - Accidental overdose [Recovered/Resolved]
  - Off label use [Unknown]

NARRATIVE: CASE EVENT DATE: 20151201
